FAERS Safety Report 10173453 (Version 1)
Quarter: 2014Q2

REPORT INFORMATION
  Report Type: Spontaneous
  Country: US (occurrence: US)
  Receive Date: 20140515
  Receipt Date: 20140515
  Transmission Date: 20141212
  Serious: No
  Sender: FDA-Public Use
  Company Number: US-TEVA-478196USA

PATIENT
  Age: 78 Year
  Sex: Female
  Weight: 47.22 kg

DRUGS (4)
  1. AMRIX [Suspect]
     Indication: MUSCLE SPASMS
     Dates: start: 20140423
  2. AMRIX [Suspect]
     Indication: MUSCLE SPASMS
  3. OXYCONTIN [Concomitant]
     Indication: PAIN
  4. PERCOCET [Concomitant]
     Indication: PAIN

REACTIONS (2)
  - Drug effect increased [Not Recovered/Not Resolved]
  - Somnolence [Not Recovered/Not Resolved]
